FAERS Safety Report 9102119 (Version 2)
Quarter: 2013Q4

REPORT INFORMATION
  Report Type: Spontaneous
  Country: US (occurrence: US)
  Receive Date: 20130218
  Receipt Date: 20131118
  Transmission Date: 20140711
  Serious: Yes (Hospitalization, Other)
  Sender: FDA-Public Use
  Company Number: US-BIOGENIDEC-2013BI014500

PATIENT
  Age: 67 Year
  Sex: Female

DRUGS (2)
  1. AVONEX [Suspect]
     Indication: MULTIPLE SCLEROSIS
     Route: 030
     Dates: start: 20010112
  2. AVONEX [Suspect]
     Indication: MULTIPLE SCLEROSIS
     Route: 030
     Dates: end: 20130501

REACTIONS (9)
  - Myocardial infarction [Unknown]
  - Cerebrovascular accident [Unknown]
  - Convulsion [Unknown]
  - Hallucination [Unknown]
  - Aggression [Recovered/Resolved]
  - Skin lesion [Unknown]
  - Influenza like illness [Unknown]
  - Mood swings [Recovered/Resolved]
  - Malaise [Not Recovered/Not Resolved]
